FAERS Safety Report 9858358 (Version 2)
Quarter: 2014Q1

REPORT INFORMATION
  Report Type: Spontaneous
  Country: SE (occurrence: None)
  Receive Date: 20140129
  Receipt Date: 20140328
  Transmission Date: 20141002
  Serious: Yes (Life-Threatening, Other)
  Sender: FDA-Public Use
  Company Number: SE-20140001

PATIENT
  Age: 37 Year
  Sex: Female

DRUGS (1)
  1. DOTAREM [Suspect]
     Indication: PRODUCT USED FOR UNKNOWN INDICATION
     Dosage: (1 IN 1D) NOT OTHEWISE SPECIFIED
     Route: 042
     Dates: start: 20131129, end: 20131129

REACTIONS (3)
  - Urticaria [None]
  - Paraesthesia oral [None]
  - Paraesthesia oral [None]
